FAERS Safety Report 5843060-3 (Version None)
Quarter: 2008Q3

REPORT INFORMATION
  Report Type: 
  Country: None (occurrence: None)
  Receive Date: 20080808
  Receipt Date: 20080729
  Transmission Date: 20090109
  Serious: Yes (Other)
  Sender: FDA-Public Use
  Company Number: 2007-02415

PATIENT
  Age: 69 Year
  Sex: Female
  Weight: 50 kg

DRUGS (3)
  1. VELCADE [Suspect]
     Indication: MULTIPLE MYELOMA
     Dosage: 1.4 MG UNK INTRAVENOUS
     Route: 042
     Dates: start: 20070116, end: 20070306
  2. ZOVIRAX [Suspect]
     Indication: HERPES ZOSTER
     Dosage: 250 MG UNK INTRAVENOUS
     Route: 042
     Dates: start: 20070213, end: 20070219
  3. DEXAMETHASONE TAB [Concomitant]

REACTIONS (6)
  - BLOOD LACTATE DEHYDROGENASE INCREASED [None]
  - DYSPNOEA [None]
  - HERPES ZOSTER [None]
  - MALAISE [None]
  - NEUROGENIC BLADDER [None]
  - PLATELET COUNT DECREASED [None]
